FAERS Safety Report 13876458 (Version 1)
Quarter: 2017Q3

REPORT INFORMATION
  Report Type: Spontaneous
  Country: US (occurrence: US)
  Receive Date: 20170817
  Receipt Date: 20170817
  Transmission Date: 20171127
  Serious: No
  Sender: FDA-Public Use
  Company Number: US-BRISTOL-MYERS SQUIBB COMPANY-BMS-2017-069696

PATIENT
  Age: 51 Year
  Sex: Male
  Weight: 136.5 kg

DRUGS (2)
  1. ELIQUIS [Suspect]
     Active Substance: APIXABAN
     Indication: CEREBROVASCULAR ACCIDENT PROPHYLAXIS
     Dosage: 5 MG, BID
     Route: 048
     Dates: start: 2017
  2. ELIQUIS [Suspect]
     Active Substance: APIXABAN
     Indication: HYPERTENSION
     Route: 065

REACTIONS (5)
  - Weight increased [Unknown]
  - Hunger [Unknown]
  - Dyspnoea [Unknown]
  - Somnambulism [Unknown]
  - Fatigue [Unknown]

NARRATIVE: CASE EVENT DATE: 20170802
